FAERS Safety Report 10081398 (Version 1)
Quarter: 2014Q2

REPORT INFORMATION
  Report Type: Spontaneous
  Country: FR (occurrence: None)
  Receive Date: 20140414
  Receipt Date: 20140414
  Transmission Date: 20141212
  Serious: Yes (Hospitalization)
  Sender: FDA-Public Use
  Company Number: 2280090

PATIENT
  Age: 54 Year
  Sex: Male

DRUGS (2)
  1. CARBOPLATIN [Suspect]
     Indication: LUNG ADENOCARCINOMA
     Route: 042
     Dates: start: 20131115, end: 20131206
  2. TAXOL [Suspect]
     Indication: LUNG ADENOCARCINOMA

REACTIONS (4)
  - Myocardial infarction [None]
  - Ischaemic stroke [None]
  - Hypercalcaemia [None]
  - Sinus tachycardia [None]
